FAERS Safety Report 8428321-6 (Version None)
Quarter: 2012Q2

REPORT INFORMATION
  Report Type: 
  Country: None (occurrence: None)
  Receive Date: 20120611
  Receipt Date: 20120528
  Transmission Date: 20120825
  Serious: Yes (Other)
  Sender: FDA-Public Use
  Company Number: JP-AMGEN-JPNSP2012034792

PATIENT
  Age: 51 Year
  Sex: Male

DRUGS (3)
  1. ROMIPLATE [Suspect]
     Route: 058
  2. ROMIPLATE [Suspect]
     Route: 058
     Dates: start: 20120507, end: 20120514
  3. ROMIPLATE [Suspect]
     Indication: IDIOPATHIC THROMBOCYTOPENIC PURPURA
     Route: 058
     Dates: start: 20120507, end: 20120507

REACTIONS (3)
  - WHITE BLOOD CELL COUNT DECREASED [None]
  - ERYTHROBLAST COUNT INCREASED [None]
  - MYELOFIBROSIS [None]
